FAERS Safety Report 11347559 (Version 1)
Quarter: 2015Q3

REPORT INFORMATION
  Report Type: Spontaneous
  Country: US (occurrence: US)
  Receive Date: 20150803
  Receipt Date: 20150803
  Transmission Date: 20151125
  Serious: No
  Sender: FDA-Public Use
  Company Number: US-ELI_LILLY_AND_COMPANY-US201108002809

PATIENT
  Age: 10 Year
  Sex: Male
  Weight: 38.55 kg

DRUGS (1)
  1. STRATTERA [Suspect]
     Active Substance: ATOMOXETINE HYDROCHLORIDE
     Indication: PSYCHOMOTOR HYPERACTIVITY
     Dosage: 40 MG, QD

REACTIONS (8)
  - Fatigue [Unknown]
  - Abnormal behaviour [Unknown]
  - Somnolence [Unknown]
  - Abdominal discomfort [Unknown]
  - Nausea [Unknown]
  - Lethargy [Unknown]
  - Headache [Unknown]
  - Malaise [Unknown]
